FAERS Safety Report 12412628 (Version 9)
Quarter: 2018Q2

REPORT INFORMATION
  Report Type: Spontaneous
  Country: FR (occurrence: FR)
  Receive Date: 20160527
  Receipt Date: 20180404
  Transmission Date: 20180711
  Serious: Yes (Hospitalization, Disabling, Congenital Anomaly, Other)
  Sender: FDA-Public Use
  Company Number: FR-ABBVIE-16P-056-1638240-00

PATIENT
  Sex: Female

DRUGS (3)
  1. SPECIAFOLDINE [Concomitant]
     Active Substance: FOLIC ACID
     Indication: PRODUCT USED FOR UNKNOWN INDICATION
     Route: 065
  2. DEPAKINE CHRONO [Suspect]
     Active Substance: VALPROATE SODIUM
     Indication: MATERNAL EXPOSURE TIMING UNSPECIFIED
     Route: 064
  3. NEURONTIN [Concomitant]
     Active Substance: GABAPENTIN
     Indication: PRODUCT USED FOR UNKNOWN INDICATION
     Route: 065

REACTIONS (27)
  - Dysmorphism [Unknown]
  - Haemangioma [Unknown]
  - Dysphagia [Unknown]
  - Myopia [Unknown]
  - Bronchiolitis [Recovered/Resolved]
  - Gastrooesophageal reflux disease [Unknown]
  - Prognathism [Unknown]
  - Peroneal nerve palsy [Unknown]
  - Anxiety [Unknown]
  - Amenorrhoea [Unknown]
  - Adenoidal hypertrophy [Unknown]
  - Motor dysfunction [Not Recovered/Not Resolved]
  - Hypermobility syndrome [Unknown]
  - Foetal anticonvulsant syndrome [Unknown]
  - Nasopharyngitis [Unknown]
  - Asthmatic crisis [Not Recovered/Not Resolved]
  - Disability [Not Recovered/Not Resolved]
  - Visual impairment [Unknown]
  - Astigmatism [Unknown]
  - Language disorder [Unknown]
  - Respiratory distress [Unknown]
  - Educational problem [Unknown]
  - Pain in extremity [Unknown]
  - Cognitive disorder [Unknown]
  - Wound dehiscence [Unknown]
  - Obesity [Unknown]
  - Foetal exposure during pregnancy [Unknown]

NARRATIVE: CASE EVENT DATE: 2003
